FAERS Safety Report 10363083 (Version 1)
Quarter: 2014Q1

REPORT INFORMATION
  Report Type: Spontaneous
  Country: US (occurrence: None)
  Receive Date: 20140306
  Receipt Date: 20140306
  Transmission Date: 20141002
  Serious: Yes (Hospitalization)
  Sender: FDA-Public Use
  Company Number: 163-21880-13060037

PATIENT
  Age: 75 Year
  Sex: Male

DRUGS (9)
  1. REVLIMID (LENALIDOMIDE) (10 MILLIGRAM, CAPSULES) [Suspect]
     Indication: PLASMA CELL MYELOMA
     Route: 048
     Dates: start: 20130517, end: 20130526
  2. AREDIA (PAMIDRONATE DISODIUM) [Concomitant]
  3. AMLODIPINE (AMLODIIPINE) [Concomitant]
  4. ATENOLOL (ATENOLOL) (TABLETS) [Concomitant]
  5. FENTANYL (FENTANYL) (POULTICE OR PATCH) [Concomitant]
  6. HYDROCODONE/ACETAMINOPHEN (REMEDEINE) (TABLETS) [Concomitant]
  7. MELPHALAN (MELPHALAN) (TABLETS) [Concomitant]
  8. VITAMIN B12 (CYANOCOBALAMIN) (TABLETS) [Concomitant]
  9. LIDODERM (LIDOCAINE) [Concomitant]

REACTIONS (2)
  - Asthenia [None]
  - Full blood count decreased [None]
